FAERS Safety Report 18765605 (Version 7)
Quarter: 2021Q3

REPORT INFORMATION
  Report Type: Spontaneous
  Country: FR (occurrence: FR)
  Receive Date: 20210120
  Receipt Date: 20210719
  Transmission Date: 20211014
  Serious: Yes (Death)
  Sender: FDA-Public Use
  Company Number: FR-PFIZER INC-2021025066

PATIENT
  Age: 58 Year
  Sex: Male
  Weight: 56 kg

DRUGS (6)
  1. GABAPENTIN. [Suspect]
     Active Substance: GABAPENTIN
     Indication: DEPRESSION
     Dosage: UNK (INCREASED)
     Route: 048
     Dates: start: 2018, end: 2019
  2. GABAPENTIN. [Suspect]
     Active Substance: GABAPENTIN
     Indication: NEURALGIA
     Dosage: 100 MG, 3X/DAY (2700 MG/DAY (1 TABLET OF 800 MG AND 1 CAPSULE OF 100 MG, EACH MORNING, NOON AND EVEN
     Route: 048
     Dates: start: 2017
  3. GABAPENTIN. [Suspect]
     Active Substance: GABAPENTIN
     Indication: PAIN
  4. GABAPENTIN. [Suspect]
     Active Substance: GABAPENTIN
     Indication: PAIN
  5. GABAPENTIN. [Suspect]
     Active Substance: GABAPENTIN
     Indication: NEURALGIA
     Dosage: 800 MG, 3X/DAY (2700 MG/DAY (1 TABLET OF 800 MG AND 1 CAPSULE OF 100 MG, EACH MORNING, NOON AND EVEN
     Route: 048
     Dates: start: 2017
  6. GABAPENTIN. [Suspect]
     Active Substance: GABAPENTIN
     Indication: DEPRESSION
     Dosage: UNK (INCREASED)
     Route: 048
     Dates: start: 2018

REACTIONS (1)
  - Toxicity to various agents [Fatal]
